FAERS Safety Report 13713640 (Version 3)
Quarter: 2018Q1

REPORT INFORMATION
  Report Type: Spontaneous
  Country: FR (occurrence: FR)
  Receive Date: 20170704
  Receipt Date: 20180319
  Transmission Date: 20180508
  Serious: Yes (Life-Threatening, Hospitalization)
  Sender: FDA-Public Use
  Company Number: FR-PFIZER INC-2017277566

PATIENT
  Age: 82 Year
  Sex: Female
  Weight: 166 kg

DRUGS (7)
  1. XARELTO [Suspect]
     Active Substance: RIVAROXABAN
     Indication: ATRIAL FIBRILLATION
     Dosage: 20 MG, 1X/DAY
     Route: 048
     Dates: end: 20170517
  2. HYTACAND [Suspect]
     Active Substance: CANDESARTAN CILEXETIL\HYDROCHLOROTHIAZIDE
     Indication: HYPERTENSION
     Dosage: 1 DF, 1X/DAY
     Route: 048
     Dates: end: 20170501
  3. LEXOMIL [Suspect]
     Active Substance: BROMAZEPAM
     Dosage: 0.5 DF, 1X/DAY
     Route: 048
     Dates: end: 20170501
  4. SECTRAL [Suspect]
     Active Substance: ACEBUTOLOL HYDROCHLORIDE
     Indication: ATRIAL FIBRILLATION
     Dosage: 0.5 DF, 2X/DAY
     Route: 048
     Dates: end: 20170501
  5. ATORVASTATIN CALCIUM. [Suspect]
     Active Substance: ATORVASTATIN CALCIUM
     Indication: DYSLIPIDAEMIA
     Dosage: 10 MG, 1X/DAY
     Route: 048
     Dates: start: 20161101, end: 20170501
  6. CORDARONE [Suspect]
     Active Substance: AMIODARONE HYDROCHLORIDE
     Indication: ATRIAL FIBRILLATION
     Dosage: 200 MG, 1X/DAY
     Route: 048
     Dates: start: 20100101, end: 20170518
  7. XARELTO [Suspect]
     Active Substance: RIVAROXABAN
     Dosage: UNK
     Route: 048
     Dates: start: 20170607

REACTIONS (1)
  - Interstitial lung disease [Recovering/Resolving]

NARRATIVE: CASE EVENT DATE: 20170501
